FAERS Safety Report 11792532 (Version 1)
Quarter: 2015Q4

REPORT INFORMATION
  Report Type: Spontaneous
  Country: US (occurrence: US)
  Receive Date: 20151202
  Receipt Date: 20151202
  Transmission Date: 20160305
  Serious: No
  Sender: FDA-Public Use
  Company Number: US-009507513-1512USA000651

PATIENT
  Age: 17 Year
  Sex: Female
  Weight: 58.96 kg

DRUGS (1)
  1. NEXPLANON [Suspect]
     Active Substance: ETONOGESTREL
     Indication: CONTRACEPTION
     Dosage: IMPLANT LEFT ARM, 3 YEARS
     Route: 059
     Dates: start: 20130801

REACTIONS (4)
  - Staphylococcal infection [Unknown]
  - Breast tenderness [Unknown]
  - Breast enlargement [Unknown]
  - Menstruation irregular [Unknown]

NARRATIVE: CASE EVENT DATE: 20130801
